FAERS Safety Report 10019886 (Version 4)
Quarter: 2015Q1

REPORT INFORMATION
  Report Type: Spontaneous
  Country: US (occurrence: US)
  Receive Date: 20140318
  Receipt Date: 20150320
  Transmission Date: 20150720
  Serious: No
  Sender: FDA-Public Use
  Company Number: US-GALDERMA-US14000214

PATIENT
  Age: 62 Year
  Sex: Female

DRUGS (4)
  1. MIRVASO [Suspect]
     Active Substance: BRIMONIDINE TARTRATE
     Indication: ROSACEA
     Dosage: 0.33%
     Route: 061
     Dates: start: 20131230, end: 20140111
  2. CETAPHIL CLEANSER [Concomitant]
     Route: 061
  3. CETAPHIL MOISTURIZING CREAM [Concomitant]
     Active Substance: COSMETICS
     Route: 061
  4. CETAPHIL [Concomitant]
     Active Substance: AVOBENZONE\OCTOCRYLENE\TRICLOSAN
     Route: 061

REACTIONS (20)
  - Epistaxis [Recovered/Resolved]
  - Skin irritation [Recovered/Resolved]
  - Cheilitis [Recovered/Resolved]
  - Dark circles under eyes [Recovered/Resolved]
  - Hypotension [Recovered/Resolved]
  - Ocular hyperaemia [Recovered/Resolved]
  - Dermatitis contact [Recovered/Resolved]
  - Condition aggravated [Recovered/Resolved]
  - Product use issue [Recovered/Resolved]
  - Rebound effect [Recovered/Resolved]
  - Rash macular [Recovered/Resolved]
  - Lip dry [Recovered/Resolved]
  - Ocular discomfort [Recovered/Resolved]
  - Capillary fragility [Recovered/Resolved]
  - Skin burning sensation [Recovered/Resolved]
  - Skin swelling [Recovered/Resolved]
  - Vision blurred [Recovered/Resolved]
  - Erythema [Recovered/Resolved]
  - Flushing [Recovered/Resolved]
  - Activities of daily living impaired [Recovered/Resolved]

NARRATIVE: CASE EVENT DATE: 20131230
